FAERS Safety Report 4971494-8 (Version None)
Quarter: 2006Q2

REPORT INFORMATION
  Report Type: 
  Country: None (occurrence: None)
  Receive Date: 20060413
  Receipt Date: 20060310
  Transmission Date: 20061013
  Serious: Yes (Other)
  Sender: FDA-Public Use
  Company Number: PHEH2006US03283

PATIENT
  Age: 78 Year
  Sex: Female

DRUGS (3)
  1. THALIDOMIDE [Concomitant]
  2. DECADRON [Concomitant]
     Dates: end: 20060306
  3. ZOMETA [Suspect]
     Indication: METASTASES TO BONE
     Dosage: 4 MG, EVERY MONTH
     Dates: start: 20050302, end: 20051026

REACTIONS (2)
  - ORAL SOFT TISSUE DISORDER [None]
  - OSTEONECROSIS [None]
